FAERS Safety Report 13832570 (Version 1)
Quarter: 2017Q3

REPORT INFORMATION
  Report Type: Spontaneous
  Country: US (occurrence: US)
  Receive Date: 20170803
  Receipt Date: 20170803
  Transmission Date: 20171127
  Serious: No
  Sender: FDA-Public Use
  Company Number: US-ROCHE-674788

PATIENT
  Age: 50 Year
  Sex: Female
  Weight: 93.9 kg

DRUGS (1)
  1. BONIVA [Suspect]
     Active Substance: IBANDRONATE SODIUM
     Indication: OSTEOPENIA
     Route: 048

REACTIONS (6)
  - Flatulence [Unknown]
  - Dyspepsia [Not Recovered/Not Resolved]
  - Nausea [Unknown]
  - Diarrhoea [Recovered/Resolved]
  - Chest discomfort [Unknown]
  - Vomiting [Unknown]

NARRATIVE: CASE EVENT DATE: 20091202
